FAERS Safety Report 8154548-7 (Version None)
Quarter: 2012Q1

REPORT INFORMATION
  Report Type: 
  Country: None (occurrence: None)
  Receive Date: 20120202
  Receipt Date: 20120125
  Transmission Date: 20120608
  Serious: Yes (Life-Threatening)
  Sender: FDA-Public Use
  Company Number: 2012030908

PATIENT
  Age: 43 Year
  Sex: Male

DRUGS (4)
  1. PRIVIGEN [Suspect]
     Indication: CHRONIC INFLAMMATORY DEMYELINATING POLYRADICULONEUROPATHY
     Dosage: 100 MG/ML
     Dates: start: 20111101, end: 20111101
  2. LYRICA [Concomitant]
  3. NEXIUM [Concomitant]
  4. AZATHIOPRINE [Concomitant]

REACTIONS (5)
  - DYSPNOEA [None]
  - OFF LABEL USE [None]
  - COUGH [None]
  - PAIN [None]
  - PULMONARY EMBOLISM [None]
